FAERS Safety Report 24205881 (Version 1)
Quarter: 2024Q3

REPORT INFORMATION
  Report Type: Spontaneous
  Country: CN (occurrence: CN)
  Receive Date: 20240813
  Receipt Date: 20240813
  Transmission Date: 20241016
  Serious: Yes (Hospitalization)
  Sender: BAYER
  Company Number: CN-BAYER-2024A115751

PATIENT
  Age: 73 Year
  Sex: Male
  Weight: 64 kg

DRUGS (2)
  1. STIVARGA [Suspect]
     Active Substance: REGORAFENIB MONOHYDRATE
     Indication: Rectal adenocarcinoma
     Dosage: 80 MG, QD
     Route: 048
     Dates: start: 20240628, end: 20240704
  2. NIVOLUMAB [Concomitant]
     Active Substance: NIVOLUMAB
     Indication: Rectal adenocarcinoma
     Dosage: 240 MG, QD
     Route: 041
     Dates: start: 20240628, end: 20240711

REACTIONS (4)
  - Renal injury [Recovering/Resolving]
  - Proteinuria [Recovering/Resolving]
  - Blood pressure increased [None]
  - Off label use [None]

NARRATIVE: CASE EVENT DATE: 20240601
